FAERS Safety Report 4368925-3 (Version None)
Quarter: 2004Q2

REPORT INFORMATION
  Report Type: 
  Country: None (occurrence: None)
  Receive Date: 20040525
  Receipt Date: 20040517
  Transmission Date: 20050107
  Serious: Yes (Other)
  Sender: FDA-Public Use
  Company Number: 2004020690

PATIENT
  Age: 40 Year
  Sex: Female
  Weight: 56.6996 kg

DRUGS (1)
  1. BENADRYL [Suspect]
     Indication: PRURITUS
     Dosage: 2 KAPSEALS ONCE, ORAL
     Route: 048
     Dates: start: 20040322, end: 20040322

REACTIONS (9)
  - DYSPNOEA [None]
  - EYE SWELLING [None]
  - LOCAL SWELLING [None]
  - OEDEMA MOUTH [None]
  - OROPHARYNGEAL SWELLING [None]
  - PARAESTHESIA ORAL [None]
  - PHARMACEUTICAL PRODUCT COMPLAINT [None]
  - SINUS CONGESTION [None]
  - SWELLING FACE [None]
